FAERS Safety Report 6360433-3 (Version None)
Quarter: 2009Q3

REPORT INFORMATION
  Report Type: 
  Country: None (occurrence: None)
  Receive Date: 20090917
  Receipt Date: 20090907
  Transmission Date: 20100115
  Serious: Yes (Death, Hospitalization, Other)
  Sender: FDA-Public Use
  Company Number: GB-ABBOTT-09P-167-0593618-00

PATIENT
  Sex: Female

DRUGS (8)
  1. KLARICID [Suspect]
     Indication: PNEUMONIA
  2. PEPTAC LIQUID [Concomitant]
     Route: 048
  3. OMEPRAZOLE [Concomitant]
     Route: 048
  4. PARACETAMOL [Concomitant]
     Route: 048
  5. MAGNESIUM HYDROXIDE TAB [Concomitant]
     Route: 048
  6. MOVICOL SACHETS [Concomitant]
     Route: 048
  7. CYCLIZINE [Concomitant]
     Route: 048
  8. MICROLETTE ENEMA [Concomitant]
     Route: 054

REACTIONS (9)
  - COGNITIVE DISORDER [None]
  - CYSTITIS [None]
  - DELIRIUM [None]
  - FAECALOMA [None]
  - HALLUCINATION [None]
  - OEDEMA PERIPHERAL [None]
  - PHARYNGEAL OEDEMA [None]
  - PNEUMONIA [None]
  - SWOLLEN TONGUE [None]
